FAERS Safety Report 9349640 (Version 2)
Quarter: 2013Q3

REPORT INFORMATION
  Report Type: Spontaneous
  Country: AU (occurrence: AU)
  Receive Date: 20130614
  Receipt Date: 20130820
  Transmission Date: 20140515
  Serious: Yes (Life-Threatening, Hospitalization)
  Sender: FDA-Public Use
  Company Number: AU-AMGEN-AUSSP2013041896

PATIENT
  Age: 54 Year
  Sex: Female
  Weight: 55 kg

DRUGS (1)
  1. PROLIA [Suspect]
     Indication: OSTEOPOROSIS
     Dosage: 60 MG, EVERY YEAR
     Route: 058
     Dates: start: 20130101, end: 20130510

REACTIONS (1)
  - Pericarditis constrictive [Recovered/Resolved with Sequelae]
